FAERS Safety Report 8265511-X (Version None)
Quarter: 2012Q2

REPORT INFORMATION
  Report Type: 
  Country: None (occurrence: None)
  Receive Date: 20120403
  Receipt Date: 20120319
  Transmission Date: 20120825
  Serious: Yes (Hospitalization)
  Sender: FDA-Public Use
  Company Number: 2012-00525

PATIENT
  Age: 67 Year
  Sex: Male
  Weight: 89.9 kg

DRUGS (3)
  1. SIMVASTATIN [Concomitant]
  2. LOSARTAN POTASSIUM [Suspect]
     Indication: HYPERTENSION
     Dosage: (100 MG)
     Dates: start: 20111130, end: 20120207
  3. TAMSULOSIN HCL [Concomitant]

REACTIONS (1)
  - CEREBROVASCULAR ACCIDENT [None]
